FAERS Safety Report 8142158-7 (Version None)
Quarter: 2012Q1

REPORT INFORMATION
  Report Type: 
  Country: None (occurrence: None)
  Receive Date: 20120216
  Receipt Date: 20120208
  Transmission Date: 20120608
  Serious: Yes (Hospitalization, Other)
  Sender: FDA-Public Use
  Company Number: US-ROCHE-788915

PATIENT
  Sex: Male
  Weight: 133.93 kg

DRUGS (1)
  1. ACCUTANE [Suspect]
     Indication: ACNE
     Route: 048
     Dates: start: 19900101, end: 19910101

REACTIONS (5)
  - INFLAMMATORY BOWEL DISEASE [None]
  - IRON DEFICIENCY [None]
  - IRRITABLE BOWEL SYNDROME [None]
  - ENTEROCUTANEOUS FISTULA [None]
  - COLITIS ULCERATIVE [None]
